FAERS Safety Report 8199221-4 (Version None)
Quarter: 2012Q1

REPORT INFORMATION
  Report Type: 
  Country: None (occurrence: None)
  Receive Date: 20120309
  Receipt Date: 20120301
  Transmission Date: 20120608
  Serious: Yes (Hospitalization)
  Sender: FDA-Public Use
  Company Number: FR-TEVA-325720USA

PATIENT
  Age: 72 Year
  Sex: Male

DRUGS (6)
  1. TREANDA [Suspect]
     Indication: B-CELL LYMPHOMA
     Route: 042
     Dates: start: 20111031, end: 20120124
  2. CYTARABINE [Suspect]
     Indication: B-CELL LYMPHOMA
     Route: 037
     Dates: start: 20111031
  3. METHOTREXATE [Suspect]
     Indication: B-CELL LYMPHOMA
     Route: 037
  4. METHYLPREDNISOLONE ACETATE [Concomitant]
     Dates: start: 20111031
  5. ALLOPURINOL [Concomitant]
     Dates: start: 20111031, end: 20111226
  6. RITUXIMAB [Suspect]
     Indication: B-CELL LYMPHOMA
     Dates: start: 20111031

REACTIONS (2)
  - DERMATITIS EXFOLIATIVE [None]
  - SKIN EXFOLIATION [None]
